FAERS Safety Report 8910955 (Version 4)
Quarter: 2013Q3

REPORT INFORMATION
  Report Type: Spontaneous
  Country: US (occurrence: US)
  Receive Date: 20121115
  Receipt Date: 20130726
  Transmission Date: 20140515
  Serious: Yes (Hospitalization, Other)
  Sender: FDA-Public Use
  Company Number: US-009507513-1202USA02445

PATIENT
  Sex: Female
  Weight: 63.49 kg

DRUGS (11)
  1. FOSAMAX [Suspect]
     Indication: OSTEOPOROSIS
     Dosage: 10 MG, QW
     Route: 048
     Dates: start: 1996, end: 2000
  2. FOSAMAX [Suspect]
     Indication: OSTEOPENIA
     Dosage: 70 MG, UNK
     Route: 048
     Dates: start: 2000, end: 200606
  3. FOSAMAX [Suspect]
     Dosage: 70 MG, QW
     Route: 048
     Dates: start: 200710
  4. FOSAMAX PLUS D [Suspect]
     Indication: OSTEOPOROSIS
     Dosage: 70 MG/2800 IU, QW
     Route: 048
     Dates: start: 200607, end: 200709
  5. FOSAMAX PLUS D [Suspect]
     Indication: OSTEOPENIA
     Dosage: 70 MG/2800 IU, QW
     Route: 048
     Dates: start: 200810
  6. FORTEO [Suspect]
     Dosage: UNK
     Dates: start: 20101129
  7. CALTRATE (CALCIUM CARBONATE (+) CHOLECALCIFEROL) [Concomitant]
     Dosage: UNK
     Dates: start: 1990, end: 2010
  8. VITAMIN D (UNSPECIFIED) [Concomitant]
     Dosage: UNK
     Dates: start: 1999
  9. FOLIC ACID [Concomitant]
     Dosage: UNK
  10. METHOTREXATE [Concomitant]
     Indication: EYE DISORDER
     Dosage: UNK
     Dates: start: 1996, end: 2005
  11. SYNTHROID [Concomitant]
     Indication: HYPOTHYROIDISM
     Dosage: UNK
     Dates: start: 1996, end: 2010

REACTIONS (63)
  - Open reduction of fracture [Unknown]
  - Femur fracture [Unknown]
  - Rotator cuff repair [Unknown]
  - Renal failure [Unknown]
  - Pulmonary embolism [Recovered/Resolved]
  - Sensation of pressure [Unknown]
  - Ejection fraction abnormal [Unknown]
  - Hearing impaired [Unknown]
  - Vena cava filter insertion [Unknown]
  - Pneumonia [Recovered/Resolved]
  - Haemoglobin decreased [Unknown]
  - Sigmoidectomy [Unknown]
  - Respiratory failure [Unknown]
  - Retroperitoneal haematoma [Unknown]
  - Fluid overload [Unknown]
  - Generalised oedema [Unknown]
  - Femur fracture [Unknown]
  - Low turnover osteopathy [Unknown]
  - Hypertonic bladder [Unknown]
  - Dental caries [Unknown]
  - Spinal compression fracture [Unknown]
  - Rib fracture [Unknown]
  - Dental implantation [Unknown]
  - Diabetes mellitus [Unknown]
  - Herpes zoster [Recovered/Resolved]
  - Hypertension [Unknown]
  - Osteoarthritis [Unknown]
  - Steroid therapy [Unknown]
  - Fall [Unknown]
  - Spondyloarthropathy [Unknown]
  - Eye inflammation [Unknown]
  - Female genital tract fistula [Unknown]
  - Diverticulum [Unknown]
  - Amnesia [Unknown]
  - Anaemia [Unknown]
  - Depression [Unknown]
  - Urinary tract infection [Unknown]
  - Deep vein thrombosis [Recovered/Resolved]
  - Adverse drug reaction [Unknown]
  - Haemorrhage [Unknown]
  - Type V hyperlipidaemia [Unknown]
  - Kyphosis [Unknown]
  - Chronic obstructive pulmonary disease [Unknown]
  - Insomnia [Unknown]
  - Hallucination [Recovered/Resolved]
  - Adverse drug reaction [Recovered/Resolved]
  - Oropharyngeal pain [Recovering/Resolving]
  - Oedema [Recovered/Resolved]
  - Cellulitis [Recovered/Resolved]
  - Neurodegenerative disorder [Unknown]
  - Retinitis [Unknown]
  - Macular degeneration [Unknown]
  - Diabetic eye disease [Unknown]
  - Herpes ophthalmic [Recovered/Resolved]
  - Hyperkalaemia [Recovered/Resolved]
  - Diabetes mellitus inadequate control [Unknown]
  - Cardiac failure congestive [Unknown]
  - Senile dementia [Unknown]
  - Pleural effusion [Unknown]
  - Gastrooesophageal reflux disease [Unknown]
  - Back pain [Unknown]
  - Pyrexia [Unknown]
  - Headache [Unknown]
